FAERS Safety Report 8118157-8 (Version None)
Quarter: 2012Q1

REPORT INFORMATION
  Report Type: 
  Country: None (occurrence: None)
  Receive Date: 20120207
  Receipt Date: 20120127
  Transmission Date: 20120608
  Serious: Yes (Other)
  Sender: FDA-Public Use
  Company Number: SE-BRISTOL-MYERS SQUIBB COMPANY-16373029

PATIENT
  Age: 75 Year
  Sex: Male

DRUGS (1)
  1. HYDREA [Suspect]
     Dosage: TABS

REACTIONS (1)
  - GASTROSTOMY TUBE INSERTION [None]
